FAERS Safety Report 7185124-0 (Version None)
Quarter: 2010Q4

REPORT INFORMATION
  Report Type: 
  Country: None (occurrence: None)
  Receive Date: 20101222
  Receipt Date: 20100529
  Transmission Date: 20110411
  Serious: No
  Sender: FDA-Public Use
  Company Number: US-AMGEN-TCS415591

PATIENT

DRUGS (3)
  1. ENBREL [Suspect]
     Indication: PSORIASIS
     Dosage: 50 MG, 2 TIMES/WK
     Route: 058
     Dates: start: 20100526
  2. BETAMETHASONE [Concomitant]
     Dosage: UNK UNK, UNK
  3. CALCIPOTRIENE [Concomitant]
     Dosage: UNK UNK, UNK

REACTIONS (7)
  - CHILLS [None]
  - DIZZINESS [None]
  - INFLUENZA LIKE ILLNESS [None]
  - MALAISE [None]
  - NAUSEA [None]
  - PAIN [None]
  - PYREXIA [None]
